FAERS Safety Report 9921304 (Version 1)
Quarter: 2014Q1

REPORT INFORMATION
  Report Type: Spontaneous
  Country: TR (occurrence: TR)
  Receive Date: 20140225
  Receipt Date: 20140225
  Transmission Date: 20141002
  Serious: Yes (Death, Other)
  Sender: FDA-Public Use
  Company Number: TR-CELGENEUS-161-POMAL-14022584

PATIENT
  Age: 33 Year
  Sex: Male

DRUGS (2)
  1. POMALYST [Suspect]
     Indication: PLASMACYTOMA
     Route: 048
     Dates: start: 20131123
  2. MELPHALAN [Concomitant]
     Indication: PLASMACYTOMA
     Dosage: 100 MILLIGRAM
     Route: 041
     Dates: start: 20131218, end: 20131218

REACTIONS (1)
  - Neutropenic sepsis [Fatal]
